FAERS Safety Report 5060184-1 (Version None)
Quarter: 2006Q3

REPORT INFORMATION
  Report Type: 
  Country: None (occurrence: None)
  Receive Date: 20060719
  Receipt Date: 20060706
  Transmission Date: 20061208
  Serious: Yes (Hospitalization)
  Sender: FDA-Public Use
  Company Number: E044-318-3734

PATIENT
  Age: 73 Year
  Sex: Male
  Weight: 80 kg

DRUGS (7)
  1. DONEPEZIL HCL [Suspect]
     Indication: DEMENTIA
     Dosage: SEE IMAGE
     Route: 048
     Dates: start: 20041220, end: 20050313
  2. DONEPEZIL HCL [Suspect]
     Indication: DEMENTIA
     Dosage: SEE IMAGE
     Route: 048
     Dates: start: 20050316, end: 20050319
  3. DONEPEZIL HCL [Suspect]
     Indication: DEMENTIA
     Dosage: DOUBLEBLIND, ORAL
     Route: 048
     Dates: start: 20040803, end: 20041220
  4. LANSOPRAZOLE [Concomitant]
  5. PRAMIPEXOLE [Concomitant]
  6. CO-CARELODOPA (SINEMET) [Concomitant]
  7. FUROSEMIDE [Concomitant]

REACTIONS (12)
  - CLOSTRIDIUM DIFFICILE COLITIS [None]
  - CONFUSIONAL STATE [None]
  - DEHYDRATION [None]
  - DISORIENTATION [None]
  - FEELING COLD [None]
  - HALLUCINATION [None]
  - HYPOTHERMIA [None]
  - LOWER RESPIRATORY TRACT INFECTION [None]
  - MALAISE [None]
  - NAUSEA [None]
  - SEPSIS [None]
  - VOMITING [None]
